FAERS Safety Report 25418473 (Version 1)
Quarter: 2025Q2

REPORT INFORMATION
  Report Type: Spontaneous
  Country: US (occurrence: None)
  Receive Date: 20250606
  Receipt Date: 20250606
  Transmission Date: 20250716
  Serious: Yes (Hospitalization)
  Sender: FDA-CTU
  Company Number: None

PATIENT
  Age: 77 Year
  Sex: Male
  Weight: 143 kg

DRUGS (3)
  1. WARFARIN SODIUM [Suspect]
     Active Substance: WARFARIN SODIUM
     Indication: Atrial fibrillation
     Route: 048
  2. VALPROIC ACID [Suspect]
     Active Substance: VALPROIC ACID
  3. DEPAKOTE [Suspect]
     Active Substance: DIVALPROEX SODIUM

REACTIONS (4)
  - Haemorrhage [None]
  - Drug interaction [None]
  - International normalised ratio increased [None]
  - Haemorrhagic stroke [None]

NARRATIVE: CASE EVENT DATE: 20250603
